FAERS Safety Report 5269335-7 (Version None)
Quarter: 2007Q1

REPORT INFORMATION
  Report Type: 
  Country: None (occurrence: None)
  Receive Date: 20070319
  Receipt Date: 20070307
  Transmission Date: 20070707
  Serious: Yes (Other)
  Sender: FDA-Public Use
  Company Number: DE-PFIZER INC-2007018135

PATIENT
  Sex: Female

DRUGS (5)
  1. NORVASC [Suspect]
     Indication: HYPERTENSION
     Dosage: DAILY DOSE:.5MG
     Route: 048
  2. ANTIBIOTICS [Suspect]
  3. ALDACTONE [Concomitant]
  4. ENALAPRIL MALEATE [Concomitant]
  5. ASPIRIN [Concomitant]

REACTIONS (2)
  - TEETH BRITTLE [None]
  - TOOTH HYPOPLASIA [None]
